FAERS Safety Report 19495170 (Version 1)
Quarter: 2021Q3

REPORT INFORMATION
  Report Type: Spontaneous
  Country: DE (occurrence: DE)
  Receive Date: 20210706
  Receipt Date: 20210706
  Transmission Date: 20211014
  Serious: Yes (Hospitalization)
  Sender: FDA-Public Use
  Company Number: DE-TEVA-2021-DE-1928323

PATIENT
  Age: 89 Year
  Sex: Male
  Weight: 85 kg

DRUGS (16)
  1. METAMIZOL [Concomitant]
     Active Substance: METAMIZOLE SODIUM
     Dosage: 500 MG, BIS ZU 4 IN 24H, TABLETTEN
  2. MOVICOL ADULT BEUTEL [Concomitant]
     Dosage: 0.35|0.18|0.05 G, 1 BEI BEDARF, TABLETTEN
  3. PREGABALIN. [Concomitant]
     Active Substance: PREGABALIN
     Dosage: 25 MG, 1?0?0?0, KAPSELN
  4. PREGABALIN. [Concomitant]
     Active Substance: PREGABALIN
     Dosage: 75 MG, 1?0?0?1, KAPSELN
  5. DOXAZOSIN [Concomitant]
     Active Substance: DOXAZOSIN MESYLATE
     Dosage: 4 MG, 1?0?0?0, TABLETTEN
  6. SPIRO COMP.?RATIOPHARM 50MG/20MG [Suspect]
     Active Substance: FUROSEMIDE\SPIRONOLACTONE
     Dosage: 50 MILLIGRAM DAILY; 1?0?0?0
  7. TORASEMID [Suspect]
     Active Substance: TORSEMIDE
     Dosage: 10 MILLIGRAM DAILY; 1?1?0?0
  8. ACETYLSALICYLSAURE [Suspect]
     Active Substance: ASPIRIN
     Dosage: 100 MILLIGRAM DAILY;  0?1?0?0
  9. CANDESARTAN AAA 8MG [Concomitant]
     Dosage: 8 MG, 0.5?0?0.5?0, TABLETTEN
  10. PANTOPRAZOL [Concomitant]
     Active Substance: PANTOPRAZOLE SODIUM
     Dosage: 20 MG, 1?0?0?0, TABLETTEN
  11. DIGITOXIN [Concomitant]
     Active Substance: DIGITOXIN
     Dosage: 0.07 MG, 1?0?0?0, TABLETTEN
  12. VERAPAMIL [Concomitant]
     Active Substance: VERAPAMIL HYDROCHLORIDE
     Dosage: 120 MG, 1?0?0?1, TABLETTEN
  13. METAMIZOL [Concomitant]
     Active Substance: METAMIZOLE SODIUM
     Dosage: 500 MG, 1?1?1?0, TABLETTEN
  14. CALCIUM CARBONATE. [Concomitant]
     Active Substance: CALCIUM CARBONATE
     Dosage: 1250 MG, 0?1?0?0, BRAUSETABLETTEN
  15. TILIDINE/NALOXONE [Concomitant]
     Active Substance: NALOXONE HYDROCHLORIDE\TILIDINE HYDROCHLORIDE
     Dosage: 4|50 MG, 2?0?0?2, TABLETTEN
  16. BALDRIAN [Concomitant]
     Active Substance: VALERIAN
     Dosage: 45 MG, 1 BEI BEDARF, TABLETTEN

REACTIONS (1)
  - Haematemesis [Recovering/Resolving]

NARRATIVE: CASE EVENT DATE: 20210301
